FAERS Safety Report 21096902 (Version 1)
Quarter: 2022Q3

REPORT INFORMATION
  Report Type: Report from Study
  Country: US (occurrence: US)
  Receive Date: 20220718
  Receipt Date: 20220718
  Transmission Date: 20221026
  Serious: Yes (Other)
  Sender: FDA-Public Use
  Company Number: US-ABBVIE-22K-163-4402286-00

PATIENT
  Sex: Female

DRUGS (5)
  1. SKYRIZI [Suspect]
     Active Substance: RISANKIZUMAB-RZAA
     Indication: Psoriasis
     Route: 058
  2. PFIZER-BIONTECH COVID-19 VACCINE [Concomitant]
     Active Substance: TOZINAMERAN
     Indication: COVID-19 immunisation
     Dosage: 1ST DOSE
     Route: 030
     Dates: start: 202103, end: 202103
  3. PFIZER-BIONTECH COVID-19 VACCINE [Concomitant]
     Active Substance: TOZINAMERAN
     Dosage: 2ND DOS
     Route: 030
     Dates: start: 202104, end: 202104
  4. PFIZER-BIONTECH COVID-19 VACCINE [Concomitant]
     Active Substance: TOZINAMERAN
     Dosage: BOOSTER VACCINE
     Route: 030
     Dates: start: 202112, end: 202112
  5. INFLUENZA VIRUS VACCINE [Concomitant]
     Active Substance: INFLUENZA VIRUS VACCINE
     Indication: Product used for unknown indication
     Dates: start: 202110, end: 202110

REACTIONS (7)
  - Knee operation [Recovering/Resolving]
  - Nail ridging [Not Recovered/Not Resolved]
  - Onychoclasis [Not Recovered/Not Resolved]
  - Nail disorder [Unknown]
  - Skin disorder [Recovering/Resolving]
  - Psoriasis [Unknown]
  - Incision site complication [Unknown]

NARRATIVE: CASE EVENT DATE: 20200101
